FAERS Safety Report 15902227 (Version 2)
Quarter: 2019Q4

REPORT INFORMATION
  Report Type: Spontaneous
  Country: US (occurrence: US)
  Receive Date: 20190201
  Receipt Date: 20191003
  Transmission Date: 20200122
  Serious: No
  Sender: FDA-Public Use
  Company Number: US-PFIZER INC-2019036016

PATIENT
  Age: 64 Year
  Sex: Female
  Weight: 68 kg

DRUGS (1)
  1. NEURONTIN [Suspect]
     Active Substance: GABAPENTIN
     Dosage: UNK

REACTIONS (4)
  - Drug hypersensitivity [Unknown]
  - Urticaria [Unknown]
  - Vaginal haemorrhage [Unknown]
  - Swelling [Unknown]
